FAERS Safety Report 4549365-0 (Version None)
Quarter: 2005Q1

REPORT INFORMATION
  Report Type: 
  Country: None (occurrence: None)
  Receive Date: 20050106
  Receipt Date: 20041220
  Transmission Date: 20050727
  Serious: Yes (Hospitalization)
  Sender: FDA-Public Use
  Company Number: AU_041108188

PATIENT
  Age: 29 Year
  Sex: Male

DRUGS (3)
  1. ZYPREXA [Suspect]
     Indication: SCHIZOPHRENIA
     Dosage: 30 MG/1 DAY
  2. EFFEXOR [Concomitant]
  3. SOLIAN (AMISULPRIDE) [Concomitant]

REACTIONS (5)
  - CARDIAC DISORDER [None]
  - CARDIOMYOPATHY [None]
  - DIABETES MELLITUS [None]
  - DYSPNOEA [None]
  - PALPITATIONS [None]
